FAERS Safety Report 4295817-0 (Version None)
Quarter: 2004Q1

REPORT INFORMATION
  Report Type: 
  Country: None (occurrence: None)
  Receive Date: 20040216
  Receipt Date: 20031113
  Transmission Date: 20041129
  Serious: Yes (Other)
  Sender: FDA-Public Use
  Company Number: US-GLAXOSMITHKLINE-A0439618A

PATIENT
  Age: 25 Year
  Sex: Female

DRUGS (7)
  1. LAMICTAL [Suspect]
     Indication: EPILEPSY
     Dosage: 200MG TWICE PER DAY
     Route: 048
  2. RELIEF [Concomitant]
  3. PREDNISONE [Concomitant]
     Dates: end: 20030701
  4. ASPIRIN [Concomitant]
  5. ESSENTIAL OILS [Concomitant]
  6. MIDOL [Concomitant]
  7. TEGRETOL [Concomitant]
     Dates: end: 20030411

REACTIONS (5)
  - CONVULSION [None]
  - DIZZINESS [None]
  - RASH [None]
  - VISION BLURRED [None]
  - WEIGHT DECREASED [None]
